FAERS Safety Report 11515247 (Version 1)
Quarter: 2015Q3

REPORT INFORMATION
  Report Type: Spontaneous
  Country: US (occurrence: US)
  Receive Date: 20150916
  Receipt Date: 20150916
  Transmission Date: 20151125
  Serious: Yes (Other)
  Sender: FDA-Public Use
  Company Number: US-JNJFOC-20150906112

PATIENT
  Sex: Male
  Weight: 83.92 kg

DRUGS (2)
  1. INVEGA [Suspect]
     Active Substance: PALIPERIDONE
     Indication: WITHDRAWAL SYNDROME
     Route: 048
     Dates: start: 2014
  2. INVEGA [Suspect]
     Active Substance: PALIPERIDONE
     Indication: WITHDRAWAL SYNDROME
     Route: 048
     Dates: start: 2014, end: 2014

REACTIONS (9)
  - Anxiety [Recovered/Resolved]
  - Abnormal loss of weight [Not Recovered/Not Resolved]
  - Feeling abnormal [Not Recovered/Not Resolved]
  - Alcohol use [Not Recovered/Not Resolved]
  - Dysphonia [Not Recovered/Not Resolved]
  - Therapeutic response unexpected [Unknown]
  - Suicidal ideation [Not Recovered/Not Resolved]
  - Product use issue [Unknown]
  - Paraesthesia [Not Recovered/Not Resolved]

NARRATIVE: CASE EVENT DATE: 2014
